FAERS Safety Report 9348382 (Version 1)
Quarter: 2013Q2

REPORT INFORMATION
  Report Type: Spontaneous
  Country: US (occurrence: US)
  Receive Date: 20130614
  Receipt Date: 20130614
  Transmission Date: 20140414
  Serious: No
  Sender: FDA-Public Use
  Company Number: US-009507513-1306USA006176

PATIENT
  Age: 4 Year
  Sex: Male

DRUGS (1)
  1. NASONEX [Suspect]
     Dosage: AEROSOL (EA) 50
     Route: 055
     Dates: start: 201306

REACTIONS (1)
  - Salivary hypersecretion [Not Recovered/Not Resolved]
